FAERS Safety Report 20772573 (Version 3)
Quarter: 2022Q2

REPORT INFORMATION
  Report Type: Spontaneous
  Country: GB (occurrence: GB)
  Receive Date: 20220502
  Receipt Date: 20220506
  Transmission Date: 20220720
  Serious: Yes (Other)
  Sender: FDA-Public Use
  Company Number: GB-drreddys-LIT/UKI/22/0149332

PATIENT
  Age: 51 Year
  Sex: Female

DRUGS (10)
  1. ARIPIPRAZOLE [Suspect]
     Active Substance: ARIPIPRAZOLE
     Indication: Schizophrenia
  2. OLANZAPINE [Suspect]
     Active Substance: OLANZAPINE
     Indication: Schizophrenia
  3. OLANZAPINE [Suspect]
     Active Substance: OLANZAPINE
     Dosage: TITRATED UP
  4. OLANZAPINE [Suspect]
     Active Substance: OLANZAPINE
  5. HALOPERIDOL [Suspect]
     Active Substance: HALOPERIDOL
     Indication: Schizophrenia
     Dosage: FOR APPROXIMATELY SIX WEEKS
  6. AMISULPRIDE [Suspect]
     Active Substance: AMISULPRIDE
     Indication: Schizophrenia
  7. CLOZAPINE [Concomitant]
     Active Substance: CLOZAPINE
     Indication: Schizophrenia
  8. CLOZAPINE [Concomitant]
     Active Substance: CLOZAPINE
  9. CLOZAPINE [Concomitant]
     Active Substance: CLOZAPINE
     Dosage: WHICH WAS DOUBLED TO 25MG THE FOLLOWING DAY, THEN TITRATED WITH INCREMENTS OF 25MG DAILY UP TO A DOS
  10. CLOZAPINE [Concomitant]
     Active Substance: CLOZAPINE
     Dosage: WITH A MAINTENANCE DOSE AT 100MG FOR THREE DAYS TO MONITOR CLINICAL STATUS

REACTIONS (2)
  - Drug ineffective [Unknown]
  - Sedation [Recovered/Resolved]
